FAERS Safety Report 5583074-4 (Version None)
Quarter: 2008Q1

REPORT INFORMATION
  Report Type: 
  Country: None (occurrence: None)
  Receive Date: 20080107
  Receipt Date: 20080103
  Transmission Date: 20080703
  Serious: Yes (Other)
  Sender: FDA-Public Use
  Company Number: B0501654A

PATIENT
  Age: 74 Year
  Sex: Male

DRUGS (7)
  1. LAMICTAL [Suspect]
     Indication: DRUG USE FOR UNKNOWN INDICATION
  2. LOSEC I.V. [Concomitant]
  3. LIPEX [Concomitant]
  4. SINEMET CR [Concomitant]
  5. PERGOLIDE MESYLATE [Concomitant]
     Dosage: .5MG THREE TIMES PER DAY
  6. AMANTADINE HCL [Concomitant]
     Dosage: 100MG THREE TIMES PER DAY
  7. PAROXETINE [Concomitant]
     Dosage: 20MG PER DAY

REACTIONS (2)
  - FEELING DRUNK [None]
  - HALLUCINATION [None]
